FAERS Safety Report 6993382-8 (Version None)
Quarter: 2010Q3

REPORT INFORMATION
  Report Type: 
  Country: None (occurrence: None)
  Receive Date: 20100917
  Receipt Date: 20100527
  Transmission Date: 20110219
  Serious: Yes (Other)
  Sender: FDA-Public Use
  Company Number: US-ASTRAZENECA-2010SE24763

PATIENT
  Age: 46 Year
  Sex: Male
  Weight: 106.6 kg

DRUGS (2)
  1. SEROQUEL [Suspect]
     Indication: BIPOLAR DISORDER
     Route: 048
     Dates: start: 20080101, end: 20100101
  2. DEPAKOTE [Concomitant]

REACTIONS (2)
  - CONVULSION [None]
  - MEMORY IMPAIRMENT [None]
